FAERS Safety Report 8098855-5 (Version None)
Quarter: 2012Q1

REPORT INFORMATION
  Report Type: 
  Country: None (occurrence: None)
  Receive Date: 20120129
  Receipt Date: 20110926
  Transmission Date: 20120608
  Serious: No
  Sender: FDA-Public Use
  Company Number: US-ABBOTT-11P-163-0857644-00

PATIENT
  Sex: Female
  Weight: 72.64 kg

DRUGS (7)
  1. METHOTREXATE [Concomitant]
     Indication: RHEUMATOID ARTHRITIS
     Dosage: HALF OF PREVIOUS DOSE
     Dates: start: 20110901
  2. HUMIRA [Suspect]
     Indication: RHEUMATOID ARTHRITIS
     Dates: start: 20110601, end: 20110801
  3. MOBIC [Concomitant]
     Indication: RHEUMATOID ARTHRITIS
  4. HUMIRA [Suspect]
     Dates: start: 20110918
  5. ROBAXIN [Concomitant]
     Indication: MUSCLE RELAXANT THERAPY
  6. FOLIC ACID [Concomitant]
     Indication: VITAMIN SUPPLEMENTATION
  7. METHOTREXATE [Concomitant]

REACTIONS (1)
  - HEPATITIS C VIRUS TEST POSITIVE [None]
